FAERS Safety Report 9254367 (Version 5)
Quarter: 2014Q1

REPORT INFORMATION
  Report Type: Spontaneous
  Country: US (occurrence: None)
  Receive Date: 20130422
  Receipt Date: 20140304
  Transmission Date: 20141002
  Serious: Yes (Hospitalization, Other)
  Sender: FDA-Public Use
  Company Number: ADR-2013-00678

PATIENT
  Age: 13 Year
  Sex: Female

DRUGS (1)
  1. LIORESAL [Suspect]

REACTIONS (4)
  - Catheter site infection [None]
  - Hypersensitivity [None]
  - Meningitis [None]
  - Enterococcal infection [None]
